FAERS Safety Report 6670690-1 (Version None)
Quarter: 2010Q2

REPORT INFORMATION
  Report Type: 
  Country: None (occurrence: None)
  Receive Date: 20100405
  Receipt Date: 20100324
  Transmission Date: 20101027
  Serious: Yes (Hospitalization, Other)
  Sender: FDA-Public Use
  Company Number: 2010SP000925

PATIENT
  Sex: Female

DRUGS (8)
  1. LUNESTA [Suspect]
     Indication: INSOMNIA
     Dosage: 3 MG;PRN;ORAL ; 1.5 MG;PRN;ORAL
     Route: 048
  2. MELATONIN [Concomitant]
  3. SIMVASTATIN [Concomitant]
  4. THYROID TAB [Concomitant]
  5. HORMONES AND RELATED AGENTS [Concomitant]
  6. VITAMINS [Concomitant]
  7. ACYCLOVIR [Concomitant]
  8. PREV MEDS [Concomitant]

REACTIONS (5)
  - BILE DUCT CANCER [None]
  - BILIARY CANCER METASTATIC [None]
  - DEPRESSION [None]
  - LUNG NEOPLASM [None]
  - MEMORY IMPAIRMENT [None]
